FAERS Safety Report 13765112 (Version 1)
Quarter: 2017Q3

REPORT INFORMATION
  Report Type: Spontaneous
  Country: US (occurrence: US)
  Receive Date: 20170718
  Receipt Date: 20170718
  Transmission Date: 20171127
  Serious: No
  Sender: FDA-Public Use
  Company Number: US-BAYER-2017-134443

PATIENT
  Age: 91 Year
  Sex: Female
  Weight: 78 kg

DRUGS (2)
  1. HIDROCORTIZON [Concomitant]
  2. MIRALAX [Suspect]
     Active Substance: POLYETHYLENE GLYCOL 3350
     Indication: GASTROINTESTINAL DISORDER
     Dosage: 1 DF, UNK
     Route: 048

REACTIONS (4)
  - Diarrhoea [Unknown]
  - Flatulence [Unknown]
  - Inappropriate prescribing [Unknown]
  - Product use issue [Unknown]
